FAERS Safety Report 8486589-4 (Version None)
Quarter: 2012Q3

REPORT INFORMATION
  Report Type: 
  Country: None (occurrence: None)
  Receive Date: 20120703
  Receipt Date: 20120625
  Transmission Date: 20120928
  Serious: Yes (Other)
  Sender: FDA-Public Use
  Company Number: US-PFIZER INC-2012151173

PATIENT
  Sex: Female
  Weight: 63.492 kg

DRUGS (1)
  1. LATANOPROST [Suspect]
     Indication: GLAUCOMA
     Dosage: 1 GTT, 1X/DAY
     Route: 047
     Dates: start: 20111201, end: 20120423

REACTIONS (8)
  - INFLUENZA [None]
  - NASOPHARYNGITIS [None]
  - COUGH [None]
  - ASTHMA [None]
  - ANGINA PECTORIS [None]
  - DYSPNOEA [None]
  - BACK PAIN [None]
  - RESPIRATORY TRACT CONGESTION [None]
